FAERS Safety Report 9059447 (Version 1)
Quarter: 2013Q1

REPORT INFORMATION
  Report Type: Spontaneous
  Country: JP (occurrence: JP)
  Receive Date: 20130212
  Receipt Date: 20130212
  Transmission Date: 20140127
  Serious: Yes (Death, Hospitalization, Other)
  Sender: FDA-Public Use
  Company Number: JP-009507513-1206USA00155

PATIENT
  Age: 59 Year
  Sex: Male

DRUGS (7)
  1. GLACTIV [Suspect]
     Indication: TYPE 2 DIABETES MELLITUS
     Dosage: 50 MG, QD
     Route: 048
     Dates: end: 20120507
  2. AMARYL [Suspect]
     Indication: TYPE 2 DIABETES MELLITUS
     Dosage: 1.5 MG, UNK
     Route: 048
     Dates: start: 20120404, end: 20120507
  3. AMARYL [Suspect]
     Dosage: 0.5 MG, UNK
     Route: 048
     Dates: end: 20120403
  4. ACTOS [Concomitant]
     Dates: end: 20120403
  5. ZANTAC [Concomitant]
     Dosage: FREQUENCY MORNING AND EVENING
     Route: 048
  6. NINJIN-TO [Concomitant]
  7. LOPEMIN [Concomitant]
     Dosage: FREQUENCY MORNING AND EVENING
     Route: 048

REACTIONS (7)
  - Hypoglycaemia [Recovered/Resolved]
  - Infection [Unknown]
  - Oedema [Unknown]
  - Depressed level of consciousness [Fatal]
  - Death [Fatal]
  - Cold sweat [Fatal]
  - Hypoglycaemia [Fatal]
